FAERS Safety Report 13426378 (Version 2)
Quarter: 2017Q2

REPORT INFORMATION
  Report Type: Spontaneous
  Country: US (occurrence: US)
  Receive Date: 20170411
  Receipt Date: 20170510
  Transmission Date: 20170830
  Serious: No
  Sender: FDA-Public Use
  Company Number: US-ASTRAZENECA-2017SE36336

PATIENT
  Age: 58 Year
  Sex: Female
  Weight: 58.5 kg

DRUGS (3)
  1. TUDORZA PRESSAIR [Suspect]
     Active Substance: ACLIDINIUM BROMIDE
     Indication: UPPER RESPIRATORY TRACT INFECTION
     Route: 055
     Dates: start: 2013
  2. DULERA [Concomitant]
     Active Substance: FORMOTEROL FUMARATE DIHYDRATE\MOMETASONE FUROATE
     Indication: ASTHMA
     Route: 055
  3. XOPENEX INHALER [Concomitant]
     Indication: INHALATION THERAPY
     Dosage: AS REQUIRED

REACTIONS (8)
  - Intentional device misuse [Unknown]
  - Product quality issue [Unknown]
  - Bronchitis [Unknown]
  - Off label use [Unknown]
  - Pneumonitis [Unknown]
  - Drug ineffective [Unknown]
  - Drug dose omission [Unknown]
  - Product use issue [Unknown]

NARRATIVE: CASE EVENT DATE: 2013
